FAERS Safety Report 11253944 (Version 1)
Quarter: 2015Q3

REPORT INFORMATION
  Report Type: Spontaneous
  Country: US (occurrence: US)
  Receive Date: 20150709
  Receipt Date: 20150709
  Transmission Date: 20151125
  Serious: No
  Sender: FDA-Public Use
  Company Number: US-BIOGENIDEC-2015BI094071

PATIENT
  Sex: Male

DRUGS (1)
  1. AVONEX [Suspect]
     Active Substance: INTERFERON BETA-1A
     Indication: MULTIPLE SCLEROSIS
     Route: 030
     Dates: start: 2003, end: 2007

REACTIONS (5)
  - Pain [Recovered/Resolved]
  - Myalgia [Recovered/Resolved]
  - Influenza like illness [Recovered/Resolved]
  - Irritability [Recovered/Resolved]
  - Malaise [Recovered/Resolved]
